FAERS Safety Report 8212580-9 (Version None)
Quarter: 2012Q1

REPORT INFORMATION
  Report Type: 
  Country: None (occurrence: None)
  Receive Date: 20120228
  Receipt Date: 20111017
  Transmission Date: 20120608
  Serious: Yes (Hospitalization)
  Sender: FDA-Public Use
  Company Number: RB-33136-2011

PATIENT
  Age: 33 Year
  Sex: Male

DRUGS (5)
  1. SUBOXONE [Suspect]
     Indication: DRUG DEPENDENCE
     Dosage: (32 MG DOWN TO 16 MG DAILY SUBLINGUAL), (SELF TAPERING DOSES SUBLINGUAL)
     Route: 060
     Dates: start: 20071201, end: 20110101
  2. SUBOXONE [Suspect]
     Indication: DRUG DEPENDENCE
     Dosage: (32 MG DOWN TO 16 MG DAILY SUBLINGUAL), (SELF TAPERING DOSES SUBLINGUAL)
     Route: 060
     Dates: start: 20110101, end: 20110901
  3. SUBOXONE [Suspect]
     Indication: DRUG DEPENDENCE
     Dosage: (16 MG, 16 MG DAILY SUBLINGUAL)
     Route: 060
     Dates: start: 20110901, end: 20110901
  4. ADDERALL 10 [Suspect]
     Indication: ATTENTION DEFICIT/HYPERACTIVITY DISORDER
     Dosage: (105 MG DAILY TAPERED TO 40 MG DAILY )
  5. ADDERALL 10 [Suspect]
     Indication: PSYCHOMOTOR HYPERACTIVITY
     Dosage: (105 MG DAILY TAPERED TO 40 MG DAILY )

REACTIONS (12)
  - CELLULITIS [None]
  - INSOMNIA [None]
  - WRONG TECHNIQUE IN DRUG USAGE PROCESS [None]
  - UNDERDOSE [None]
  - ABSCESS [None]
  - PAIN IN EXTREMITY [None]
  - SKIN ULCER [None]
  - WEIGHT DECREASED [None]
  - PAIN [None]
  - DEPRESSION [None]
  - THERAPEUTIC RESPONSE DECREASED [None]
  - BITE [None]
